FAERS Safety Report 5837349-1 (Version None)
Quarter: 2008Q3

REPORT INFORMATION
  Report Type: 
  Country: None (occurrence: None)
  Receive Date: 20080807
  Receipt Date: 20080731
  Transmission Date: 20090109
  Serious: Yes (Death, Other)
  Sender: FDA-Public Use
  Company Number: MX-ELI_LILLY_AND_COMPANY-MX200808000321

PATIENT
  Age: 44 Year
  Sex: Male

DRUGS (2)
  1. HUMALOG [Suspect]
     Dosage: UNK, UNKNOWN
     Route: 058
     Dates: start: 20080601
  2. ZACTOS [Suspect]
     Dosage: 15 MG, UNK
     Route: 048
     Dates: start: 20080601

REACTIONS (2)
  - HEPATIC CIRRHOSIS [None]
  - THROMBOSIS [None]
